FAERS Safety Report 10276359 (Version 1)
Quarter: 2014Q3

REPORT INFORMATION
  Report Type: Spontaneous
  Country: US (occurrence: US)
  Receive Date: 20140703
  Receipt Date: 20140703
  Transmission Date: 20150326
  Serious: Yes (Other)
  Sender: FDA-Public Use
  Company Number: US-BAYER-2014-099619

PATIENT
  Age: 25 Year
  Sex: Female

DRUGS (1)
  1. MIRENA [Suspect]
     Active Substance: LEVONORGESTREL
     Indication: CONTRACEPTION
     Dosage: 20 MCG/24HR, CONT
     Route: 015
     Dates: start: 201210

REACTIONS (9)
  - Fatigue [None]
  - Breast pain [None]
  - Irritability [None]
  - Peripheral swelling [None]
  - Abdominal pain upper [None]
  - Vomiting [None]
  - Breast mass [None]
  - Breast tenderness [None]
  - Feeling abnormal [None]
